FAERS Safety Report 12268411 (Version 3)
Quarter: 2025Q4

REPORT INFORMATION
  Report Type: Spontaneous
  Country: US (occurrence: US)
  Receive Date: 20160414
  Receipt Date: 20251014
  Transmission Date: 20260117
  Serious: Yes (Other)
  Sender: BAUSCH AND LOMB
  Company Number: US-MLMSERVICE-20160405-0232208-1

PATIENT
  Age: 15 Year
  Sex: Male

DRUGS (8)
  1. AZATHIOPRINE [Suspect]
     Active Substance: AZATHIOPRINE
     Indication: Immunosuppression
     Route: 065
  2. TACROLIMUS [Concomitant]
     Active Substance: TACROLIMUS
     Indication: Immunosuppression
  3. PROCYSBI [Concomitant]
     Active Substance: CYSTEAMINE BITARTRATE
     Indication: Product used for unknown indication
     Dosage: DELAYED-RELEASE, RE-INITIATED ON POSTOP DAY THREE
  4. PREDNISONE [Concomitant]
     Active Substance: PREDNISONE
     Indication: Immunosuppression
     Dosage: TAPER
  5. IRON [Concomitant]
     Active Substance: IRON
     Indication: Iron deficiency
  6. ERGOCALCIFEROL [Concomitant]
     Active Substance: ERGOCALCIFEROL
     Indication: Hyperparathyroidism
  7. INDOMETHACIN [Concomitant]
     Active Substance: INDOMETHACIN
     Indication: Polyuria
  8. CYSTEAMINE [MERCAPTAMINE] [Concomitant]
     Indication: Photophobia

REACTIONS (2)
  - Transplant rejection [Recovered/Resolved]
  - Neutropenia [Unknown]
